FAERS Safety Report 7325167-7 (Version None)
Quarter: 2011Q1

REPORT INFORMATION
  Report Type: 
  Country: None (occurrence: None)
  Receive Date: 20110302
  Receipt Date: 20110224
  Transmission Date: 20110831
  Serious: Yes (Death)
  Sender: FDA-Public Use
  Company Number: JP-ASTELLAS-2011JP001383

PATIENT
  Age: 30 Year
  Sex: Female

DRUGS (4)
  1. STEROID [Concomitant]
     Dosage: 1 G, UNKNOWN/D
     Route: 065
     Dates: start: 20110220, end: 20110222
  2. CLARITH [Concomitant]
     Indication: NASOPHARYNGITIS
     Dosage: UNK
     Route: 048
     Dates: start: 20110214, end: 20110224
  3. PROGRAF [Suspect]
     Indication: LUPUS NEPHRITIS
     Dosage: 3 MG, UNKNOWN/D
     Route: 048
     Dates: end: 20110224
  4. TAKEPRON [Concomitant]
     Dosage: UNK
     Route: 048
     Dates: end: 20110224

REACTIONS (1)
  - DEATH [None]
